FAERS Safety Report 16878097 (Version 1)
Quarter: 2019Q4

REPORT INFORMATION
  Report Type: Spontaneous
  Country: US (occurrence: US)
  Receive Date: 20191002
  Receipt Date: 20191002
  Transmission Date: 20200122
  Serious: No
  Sender: FDA-Public Use
  Company Number: US-PFIZER INC-2019422174

PATIENT
  Age: 37 Year
  Sex: Male
  Weight: 146.51 kg

DRUGS (1)
  1. GABAPENTIN. [Suspect]
     Active Substance: GABAPENTIN
     Indication: NEUROPATHY PERIPHERAL
     Dosage: 300 MG, 3X/DAY
     Route: 048
     Dates: start: 201907

REACTIONS (3)
  - Off label use [Unknown]
  - Weight increased [Unknown]
  - Drug ineffective for unapproved indication [Unknown]
